FAERS Safety Report 8899645 (Version 1)
Quarter: 2012Q4

REPORT INFORMATION
  Report Type: 
  Country: US (occurrence: US)
  Receive Date: 20121108
  Receipt Date: 20121108
  Transmission Date: 20130627
  Serious: Yes (Other)
  Sender: FDA-Public Use
  Company Number: US-AMGEN-USASP2012032227

PATIENT
  Age: 63 Year
  Sex: Female

DRUGS (1)
  1. ENBREL [Suspect]
     Indication: HIDRADENITIS
     Dosage: 25 mg, qwk
     Dates: start: 20120401

REACTIONS (4)
  - Abscess limb [Not Recovered/Not Resolved]
  - Abscess [Not Recovered/Not Resolved]
  - Pain [Not Recovered/Not Resolved]
  - Urinary tract infection [Recovered/Resolved]
